FAERS Safety Report 17434247 (Version 6)
Quarter: 2023Q4

REPORT INFORMATION
  Report Type: Spontaneous
  Country: US (occurrence: US)
  Receive Date: 20200219
  Receipt Date: 20231227
  Transmission Date: 20240110
  Serious: Yes (Other)
  Sender: FDA-Public Use
  Company Number: US-PFIZER INC-2020055409

PATIENT
  Sex: Female

DRUGS (3)
  1. ESTRING [Suspect]
     Active Substance: ESTRADIOL
     Indication: Bone loss
     Dosage: UNK
  2. ESTRING [Suspect]
     Active Substance: ESTRADIOL
     Indication: Hormone replacement therapy
     Dosage: GET A NEW ESTRING EVERY MONTH
  3. ESTRING [Suspect]
     Active Substance: ESTRADIOL
     Dosage: UNK
     Dates: start: 2016, end: 2023

REACTIONS (7)
  - COVID-19 [Unknown]
  - Product prescribing issue [Unknown]
  - Off label use [Unknown]
  - Off label use [Unknown]
  - Cough [Unknown]
  - Nasopharyngitis [Unknown]
  - Vertigo [Unknown]
